FAERS Safety Report 5690666-0 (Version None)
Quarter: 2008Q1

REPORT INFORMATION
  Report Type: 
  Country: None (occurrence: None)
  Receive Date: 20080331
  Receipt Date: 20080331
  Transmission Date: 20080703
  Serious: No
  Sender: FDA-Public Use
  Company Number: None

PATIENT
  Age: 36 Year
  Sex: Female
  Weight: 146.9654 kg

DRUGS (7)
  1. SINGULAIR [Suspect]
     Indication: ASTHMA
     Dosage: 1 QHS PO
     Route: 048
     Dates: start: 20040401, end: 20080328
  2. SINGULAIR [Suspect]
     Indication: HYPERSENSITIVITY
     Dosage: 1 QHS PO
     Route: 048
     Dates: start: 20040401, end: 20080328
  3. BENICAR [Concomitant]
  4. VOLMAX [Concomitant]
  5. CLARITIN-D [Concomitant]
  6. ZYRTEC [Concomitant]
  7. FLONASE [Concomitant]

REACTIONS (3)
  - ABNORMAL BEHAVIOUR [None]
  - IRRITABILITY [None]
  - MOOD SWINGS [None]
